FAERS Safety Report 8936786 (Version 1)
Quarter: 2012Q4

REPORT INFORMATION
  Report Type: 
  Country: FR (occurrence: FR)
  Receive Date: 20121130
  Receipt Date: 20121130
  Transmission Date: 20130627
  Serious: Yes (Hospitalization)
  Sender: FDA-Public Use
  Company Number: FR-ABBOTT-12P-056-1013985-00

PATIENT
  Age: 72 Year
  Sex: Female

DRUGS (4)
  1. INFLUVAC [Suspect]
     Indication: ANTIVIRAL PROPHYLAXIS
     Route: 030
     Dates: start: 20121026, end: 20121026
  2. ALPRAZOLAM [Concomitant]
     Indication: PRODUCT USED FOR UNKNOWN INDICATION
  3. DEPAMIDE [Concomitant]
     Indication: PRODUCT USED FOR UNKNOWN INDICATION
     Route: 048
  4. MIANSERINE [Concomitant]
     Indication: PRODUCT USED FOR UNKNOWN INDICATION
     Route: 048

REACTIONS (6)
  - Polyarthritis [Recovered/Resolved]
  - Pyrexia [Recovered/Resolved]
  - Oedema peripheral [Recovered/Resolved]
  - Oedema peripheral [Recovered/Resolved]
  - Liver function test abnormal [Recovered/Resolved]
  - Vomiting [Recovered/Resolved]
